FAERS Safety Report 9836468 (Version 2)
Quarter: 2014Q1

REPORT INFORMATION
  Report Type: Spontaneous
  Country: CO (occurrence: CO)
  Receive Date: 20140123
  Receipt Date: 20140225
  Transmission Date: 20141002
  Serious: Yes (Other)
  Sender: FDA-Public Use
  Company Number: CO-AMGEN-COLSP2014004337

PATIENT
  Age: 52 Year
  Sex: Male

DRUGS (2)
  1. ENBREL [Suspect]
     Indication: PSORIASIS
     Dosage: 50 MG, 2X/WEEK
     Route: 058
     Dates: start: 201305, end: 201305
  2. ENBREL [Suspect]
     Dosage: 50 MG, 2X/WEEK
     Route: 058
     Dates: start: 201305, end: 201308

REACTIONS (5)
  - Drug-induced liver injury [Not Recovered/Not Resolved]
  - Skin ulcer [Recovered/Resolved]
  - Erythema [Recovered/Resolved]
  - Eye swelling [Recovered/Resolved]
  - Psoriasis [Recovered/Resolved]
